FAERS Safety Report 7386858-5 (Version None)
Quarter: 2011Q1

REPORT INFORMATION
  Report Type: 
  Country: None (occurrence: None)
  Receive Date: 20110331
  Receipt Date: 20110324
  Transmission Date: 20110831
  Serious: Yes (Other)
  Sender: FDA-Public Use
  Company Number: DE-TEVA-272916GER

PATIENT
  Sex: Male
  Weight: 2.73 kg

DRUGS (2)
  1. FOLIO FORTE [Concomitant]
     Route: 064
     Dates: start: 20100402, end: 20100618
  2. CITALOPRAM HYDROBROMIDE [Suspect]
     Route: 064
     Dates: start: 20100402, end: 20101227

REACTIONS (1)
  - SMALL FOR DATES BABY [None]
